FAERS Safety Report 4545351-5 (Version None)
Quarter: 2004Q4

REPORT INFORMATION
  Report Type: 
  Country: None (occurrence: None)
  Receive Date: 20041230
  Receipt Date: 20041221
  Transmission Date: 20050328
  Serious: Yes (Hospitalization)
  Sender: FDA-Public Use
  Company Number: 2004-DE-06306GD

PATIENT
  Age: 8 Year
  Sex: Female

DRUGS (4)
  1. MEXILETINE HCL [Suspect]
     Indication: CONVULSION
     Dosage: 15 MG/KG/D
  2. SULTHIAMIE (SULTIAME) [Concomitant]
  3. PHENYTOIN [Concomitant]
  4. CLONAZEPAM [Concomitant]

REACTIONS (1)
  - DRUG INEFFECTIVE [None]
